FAERS Safety Report 6502253-2 (Version None)
Quarter: 2009Q4

REPORT INFORMATION
  Report Type: 
  Country: None (occurrence: None)
  Receive Date: 20091216
  Receipt Date: 20091106
  Transmission Date: 20100525
  Serious: No
  Sender: FDA-Public Use
  Company Number: US-ABBOTT-09P-163-0607730-00

PATIENT
  Weight: 63.56 kg

DRUGS (4)
  1. TRILIPIX [Suspect]
     Indication: BLOOD CHOLESTEROL INCREASED
     Dates: start: 20091001
  2. TRILIPIX [Suspect]
     Indication: BLOOD TRIGLYCERIDES INCREASED
  3. WELLBUTRIN [Concomitant]
     Indication: DEPRESSION
     Dosage: UNKNOWN
  4. HRT UNKNOWN [Concomitant]
     Indication: DRUG USE FOR UNKNOWN INDICATION
     Dosage: UNKNOWN

REACTIONS (2)
  - ALOPECIA [None]
  - TRICHORRHEXIS [None]
